FAERS Safety Report 24097309 (Version 1)
Quarter: 2024Q3

REPORT INFORMATION
  Report Type: Report from Study
  Country: US (occurrence: US)
  Receive Date: 20240716
  Receipt Date: 20240716
  Transmission Date: 20241017
  Serious: Yes (Death, Other)
  Sender: UCB
  Company Number: US-UCBSA-2024025745

PATIENT
  Age: 80 Year
  Sex: Male

DRUGS (1)
  1. ROTIGOTINE [Suspect]
     Active Substance: ROTIGOTINE
     Indication: Product used for unknown indication
     Dosage: 4 MILLIGRAM, ONCE DAILY (QD)
     Route: 062
     Dates: end: 20240512

REACTIONS (8)
  - Death [Fatal]
  - Acute myocardial infarction [Unknown]
  - Sepsis [Unknown]
  - Encephalopathy [Unknown]
  - Dementia [Unknown]
  - Renal surgery [Not Recovered/Not Resolved]
  - Pyrexia [Unknown]
  - Cough [Unknown]

NARRATIVE: CASE EVENT DATE: 20240429
